FAERS Safety Report 21119721 (Version 1)
Quarter: 2022Q3

REPORT INFORMATION
  Report Type: Report from Study
  Country: IT (occurrence: IT)
  Receive Date: 20220722
  Receipt Date: 20220722
  Transmission Date: 20221026
  Serious: Yes (Other)
  Sender: FDA-Public Use
  Company Number: None

PATIENT
  Age: 54 Year
  Sex: Male

DRUGS (2)
  1. OXALIPLATIN [Suspect]
     Active Substance: OXALIPLATIN
     Indication: Cutaneous T-cell lymphoma
     Dosage: 171.72 MILLIGRAM (171.72 MG / CYCLIC (THREE TREATMENT COURSES IN TOTAL)
     Route: 042
     Dates: start: 20200127, end: 20200630
  2. GEMCITABINE [Suspect]
     Active Substance: GEMCITABINE
     Indication: Cutaneous T-cell lymphoma
     Dosage: 1908 MILLIGRAM (1908 MG / CYCLIC (THREE TREATMENT COURSES IN TOTAL)
     Route: 042
     Dates: start: 20200127, end: 20200630

REACTIONS (1)
  - Chronic myelomonocytic leukaemia [Not Recovered/Not Resolved]

NARRATIVE: CASE EVENT DATE: 20201102
